FAERS Safety Report 9165159 (Version 1)
Quarter: 2013Q1

REPORT INFORMATION
  Report Type: Spontaneous
  Country: AR (occurrence: AR)
  Receive Date: 20130315
  Receipt Date: 20130315
  Transmission Date: 20140127
  Serious: Yes (Other)
  Sender: FDA-Public Use
  Company Number: PHHY2011AR95242

PATIENT
  Age: 42 Year
  Sex: Female

DRUGS (3)
  1. SANDOSTATIN LAR [Suspect]
     Dosage: 20 MG, UNK
     Route: 030
  2. SANDOSTATIN LAR [Suspect]
     Dosage: 30 MG, UNK
     Route: 030
  3. LEVOTHYROXINE [Concomitant]
     Dosage: UNK UKN, UNK

REACTIONS (2)
  - Foetal death [Unknown]
  - Exposure during pregnancy [Unknown]
